FAERS Safety Report 7631023-7 (Version None)
Quarter: 2011Q3

REPORT INFORMATION
  Report Type: 
  Country: None (occurrence: None)
  Receive Date: 20110725
  Receipt Date: 20110714
  Transmission Date: 20111222
  Serious: No
  Sender: FDA-Public Use
  Company Number: US-BIOGENIDEC-2011BI026358

PATIENT
  Sex: Female

DRUGS (2)
  1. AVONEX [Suspect]
     Route: 030
     Dates: start: 20030101
  2. AVONEX [Suspect]
     Indication: MULTIPLE SCLEROSIS
     Route: 030
     Dates: start: 19900101, end: 20030101

REACTIONS (7)
  - GAIT DISTURBANCE [None]
  - DIZZINESS [None]
  - MUSCLE TIGHTNESS [None]
  - MENORRHAGIA [None]
  - BLADDER DISORDER [None]
  - TEMPERATURE INTOLERANCE [None]
  - MEMORY IMPAIRMENT [None]
